FAERS Safety Report 21962622 (Version 7)
Quarter: 2024Q1

REPORT INFORMATION
  Report Type: Other
  Country: DE (occurrence: None)
  Receive Date: 20230207
  Receipt Date: 20240213
  Transmission Date: 20240410
  Serious: Yes (Hospitalization)
  Sender: FDA-Public Use
  Company Number: DE-ROCHE-2702001

PATIENT
  Age: 30 Year
  Sex: Male
  Weight: 92 kg

DRUGS (13)
  1. OCREVUS [Suspect]
     Active Substance: OCRELIZUMAB
     Indication: Relapsing-remitting multiple sclerosis
     Route: 042
     Dates: start: 20180218
  2. OCREVUS [Suspect]
     Active Substance: OCRELIZUMAB
     Route: 042
     Dates: start: 20200817
  3. OCREVUS [Suspect]
     Active Substance: OCRELIZUMAB
     Route: 042
     Dates: start: 20210218
  4. OCREVUS [Suspect]
     Active Substance: OCRELIZUMAB
     Route: 042
     Dates: start: 20200214
  5. OCREVUS [Suspect]
     Active Substance: OCRELIZUMAB
     Route: 042
     Dates: start: 20210819
  6. OCREVUS [Suspect]
     Active Substance: OCRELIZUMAB
     Dosage: 8TH MAINTENANCE DOSE
     Route: 042
     Dates: start: 20220128
  7. OCREVUS [Suspect]
     Active Substance: OCRELIZUMAB
     Dosage: 9TH MAINTENANCE DOSE, NEXT INFUSION ON 27/JAN/2023
     Route: 042
     Dates: start: 20220727
  8. OCREVUS [Suspect]
     Active Substance: OCRELIZUMAB
     Dosage: FOR 205 DAYS
     Route: 042
     Dates: start: 20230217, end: 20230217
  9. COMIRNATY (TOZINAMERAN) [Suspect]
     Active Substance: TOZINAMERAN
     Indication: COVID-19 prophylaxis
     Dosage: FIRST DOSE
     Route: 065
     Dates: start: 20210426
  10. COMIRNATY (TOZINAMERAN) [Suspect]
     Active Substance: TOZINAMERAN
     Dosage: SECOND DOSE
     Route: 065
     Dates: start: 20210511
  11. SPIKEVAX (ELASOMERAN) [Suspect]
     Active Substance: ELASOMERAN
     Indication: Product used for unknown indication
     Route: 065
  12. CHOLECALCIFEROL [Concomitant]
     Active Substance: CHOLECALCIFEROL
     Indication: Vitamin D
     Dosage: INDICATION: VITAMIN D SUBSTITUTION,
     Route: 048
  13. VENLAFAXINE [Concomitant]
     Active Substance: VENLAFAXINE HYDROCHLORIDE

REACTIONS (23)
  - Pneumonia [Recovered/Resolved]
  - COVID-19 [Recovered/Resolved]
  - SARS-CoV-2 antibody test negative [Not Recovered/Not Resolved]
  - Dizziness [Recovered/Resolved]
  - Fatigue [Recovered/Resolved]
  - Fatigue [Not Recovered/Not Resolved]
  - Pain in extremity [Recovered/Resolved]
  - Pain in extremity [Recovered/Resolved]
  - Alopecia [Recovering/Resolving]
  - Discomfort [Recovered/Resolved]
  - Pyrexia [Recovered/Resolved]
  - Chills [Recovered/Resolved]
  - Listless [Not Recovered/Not Resolved]
  - Mental fatigue [Not Recovered/Not Resolved]
  - Asthenia [Not Recovered/Not Resolved]
  - Headache [Recovered/Resolved]
  - Hyperhidrosis [Recovered/Resolved]
  - Immunoglobulins decreased [Recovering/Resolving]
  - Respiratory tract infection [Recovered/Resolved]
  - Weight decreased [Recovering/Resolving]
  - B-lymphocyte count decreased [Recovered/Resolved with Sequelae]
  - Paternal exposure before pregnancy [Unknown]
  - Paternal exposure during pregnancy [Unknown]

NARRATIVE: CASE EVENT DATE: 20200401
